FAERS Safety Report 9314376 (Version 1)
Quarter: 2013Q2

REPORT INFORMATION
  Report Type: Spontaneous
  Country: RU (occurrence: RU)
  Receive Date: 20130529
  Receipt Date: 20130529
  Transmission Date: 20140414
  Serious: Yes (Hospitalization)
  Sender: FDA-Public Use
  Company Number: RU-BAYER-2013-063525

PATIENT
  Age: 48 Year
  Sex: Female

DRUGS (2)
  1. MIRENA [Suspect]
     Indication: ENDOMETRIAL HYPERPLASIA
     Dosage: 20 MCG/24HR, CONT
     Route: 015
  2. MIRENA [Suspect]
     Indication: UTERINE LEIOMYOMA

REACTIONS (6)
  - Salpingo-oophoritis [None]
  - Endometritis [None]
  - Adenomyosis [None]
  - Ovarian abscess [None]
  - Pain [None]
  - Pyrexia [None]
